FAERS Safety Report 20038104 (Version 2)
Quarter: 2021Q4

REPORT INFORMATION
  Report Type: Spontaneous
  Country: US (occurrence: US)
  Receive Date: 20211105
  Receipt Date: 20211105
  Transmission Date: 20220303
  Serious: Yes (Hospitalization, Other)
  Sender: FDA-Public Use
  Company Number: US-009507513-2111USA001215

PATIENT
  Age: 65 Year
  Sex: Male

DRUGS (2)
  1. KEYTRUDA [Suspect]
     Active Substance: PEMBROLIZUMAB
     Dosage: UNK
  2. LENVATINIB MESYLATE [Suspect]
     Active Substance: LENVATINIB MESYLATE
     Indication: Renal cell carcinoma
     Dosage: 10 MG DAILY
     Route: 048
     Dates: start: 20210819, end: 202110

REACTIONS (1)
  - Renal failure [Unknown]

NARRATIVE: CASE EVENT DATE: 20211020
